FAERS Safety Report 12257021 (Version 1)
Quarter: 2016Q2

REPORT INFORMATION
  Report Type: Spontaneous
  Country: US (occurrence: None)
  Receive Date: 20160411
  Receipt Date: 20160411
  Transmission Date: 20160815
  Serious: No
  Sender: FDA-Public Use
  Company Number: None

PATIENT
  Age: 32 Year
  Sex: Female
  Weight: 73.03 kg

DRUGS (4)
  1. AIRBORNE [Concomitant]
     Active Substance: HERBALS\MINERALS\VITAMINS
  2. TRI-LO- ESTARYLLA [Suspect]
     Active Substance: ETHINYL ESTRADIOL\NORGESTIMATE
     Indication: CONTRACEPTION
     Dosage: 12 TABLET(S)  IN THE MORNING  TAKEN BY MOUTH
     Route: 048
     Dates: start: 20160327, end: 20160407
  3. ZYRTEC [Concomitant]
     Active Substance: CETIRIZINE HYDROCHLORIDE
  4. CALCIUM/POTASSIUM/MAGNESUIM SUPPLEMENT [Concomitant]

REACTIONS (7)
  - Impaired work ability [None]
  - Product substitution issue [None]
  - Mood swings [None]
  - Swelling [None]
  - Chest pain [None]
  - Panic attack [None]
  - Crying [None]

NARRATIVE: CASE EVENT DATE: 20160407
